FAERS Safety Report 7776586-6 (Version None)
Quarter: 2011Q3

REPORT INFORMATION
  Report Type: 
  Country: None (occurrence: None)
  Receive Date: 20110922
  Receipt Date: 20110922
  Transmission Date: 20111222
  Serious: Yes (Other)
  Sender: FDA-Public Use
  Company Number: None

PATIENT
  Age: 19 Year
  Sex: Female

DRUGS (1)
  1. TRI-PREVIFEM [Suspect]
     Dosage: TAKE 1 TABLET DAILY  LAST 19 MONTHS

REACTIONS (2)
  - MENSTRUATION DELAYED [None]
  - PRODUCT QUALITY ISSUE [None]
